FAERS Safety Report 5248073-0 (Version None)
Quarter: 2007Q1

REPORT INFORMATION
  Report Type: 
  Country: None (occurrence: None)
  Receive Date: 20070222
  Receipt Date: 20070214
  Transmission Date: 20070707
  Serious: Yes (Hospitalization)
  Sender: FDA-Public Use
  Company Number: TAP2007Q00226

PATIENT
  Age: 79 Year
  Sex: Male

DRUGS (1)
  1. LUPRON DEPOT-4 [Suspect]
     Indication: PROSTATE CANCER
     Dosage: 30  MG, 1 IN 4 M, INTRAMUSCULAR
     Route: 030
     Dates: start: 20040101

REACTIONS (8)
  - COLOSTOMY [None]
  - DIALYSIS [None]
  - GASTROINTESTINAL INFECTION [None]
  - HYPOAESTHESIA [None]
  - INTESTINAL PERFORATION [None]
  - MUSCULOSKELETAL STIFFNESS [None]
  - PAIN IN EXTREMITY [None]
  - RENAL FAILURE [None]
